FAERS Safety Report 4493554-0 (Version None)
Quarter: 2004Q4

REPORT INFORMATION
  Report Type: 
  Country: None (occurrence: None)
  Receive Date: 20041103
  Receipt Date: 20041103
  Transmission Date: 20050328
  Serious: Yes (Death)
  Sender: FDA-Public Use
  Company Number: None

PATIENT
  Age: 90 Year
  Sex: Female
  Weight: 60.8 kg

DRUGS (1)
  1. ALTEPLASE  100MG  GENETECH [Suspect]
     Indication: THROMBOTIC STROKE
     Dosage: 16MG ONCE INTRA-ARTE
     Route: 013
     Dates: start: 20040614, end: 20040614

REACTIONS (2)
  - CEREBRAL HAEMORRHAGE [None]
  - GENERAL PHYSICAL HEALTH DETERIORATION [None]
